FAERS Safety Report 8047273 (Version 3)
Quarter: 2017Q2

REPORT INFORMATION
  Report Type: Report from Study
  Country: US (occurrence: US)
  Receive Date: 20110721
  Receipt Date: 20170516
  Transmission Date: 20170830
  Serious: Yes (Hospitalization, Other)
  Sender: FDA-Public Use
  Company Number: US-ACTELION-A-US2011-50766

PATIENT
  Age: 9 Year
  Sex: Male
  Weight: 12.25 kg

DRUGS (7)
  1. TRACLEER [Suspect]
     Active Substance: BOSENTAN
     Dosage: 31.25 MG, BID
     Route: 048
     Dates: start: 20020723
  2. COUMADIN [Concomitant]
     Active Substance: WARFARIN SODIUM
  3. PROZAC [Concomitant]
     Active Substance: FLUOXETINE HYDROCHLORIDE
  4. ZITHROMAX [Concomitant]
     Active Substance: AZITHROMYCIN DIHYDRATE
  5. LASIX [Concomitant]
     Active Substance: FUROSEMIDE
     Dosage: 15 MG, BID
  6. TRACLEER [Suspect]
     Active Substance: BOSENTAN
     Indication: PULMONARY ARTERIAL HYPERTENSION
     Dosage: 31.7 MG, BID
     Route: 048
     Dates: start: 2005
  7. DULERA [Concomitant]
     Active Substance: FORMOTEROL FUMARATE DIHYDRATE\MOMETASONE FUROATE
     Dosage: UNK, BID

REACTIONS (5)
  - Endocarditis [Recovering/Resolving]
  - Vascular graft [Recovering/Resolving]
  - Arterial repair [Recovering/Resolving]
  - Pneumonia [Unknown]
  - Cardiac operation [Unknown]

NARRATIVE: CASE EVENT DATE: 20110613
